FAERS Safety Report 22976799 (Version 2)
Quarter: 2024Q1

REPORT INFORMATION
  Report Type: Report from Study
  Country: US (occurrence: US)
  Receive Date: 20230925
  Receipt Date: 20240124
  Transmission Date: 20240410
  Serious: Yes (Other)
  Sender: FDA-Public Use
  Company Number: US-ABBVIE-5418825

PATIENT
  Sex: Male

DRUGS (6)
  1. SKYRIZI [Suspect]
     Active Substance: RISANKIZUMAB-RZAA
     Indication: Crohn^s disease
     Dosage: STRENGTH- 360MG/2.4M?WEEK 12
     Route: 058
     Dates: start: 20230623, end: 20230623
  2. SKYRIZI [Suspect]
     Active Substance: RISANKIZUMAB-RZAA
     Dosage: FORM STRENGTH: 360MG
     Route: 058
     Dates: start: 20230817
  3. SKYRIZI [Suspect]
     Active Substance: RISANKIZUMAB-RZAA
     Dosage: FORM STRENGTH: 360MG
     Route: 058
     Dates: start: 202312, end: 202312
  4. SKYRIZI [Suspect]
     Active Substance: RISANKIZUMAB-RZAA
     Indication: Crohn^s disease
     Dosage: WEEK 0?FORM STRENGTH: 600MG
     Route: 042
     Dates: start: 20230330, end: 20230330
  5. SKYRIZI [Suspect]
     Active Substance: RISANKIZUMAB-RZAA
     Indication: Crohn^s disease
     Dosage: WEEK 4?FORM STRENGTH: 600MG
     Route: 042
     Dates: start: 202304, end: 202304
  6. SKYRIZI [Suspect]
     Active Substance: RISANKIZUMAB-RZAA
     Indication: Crohn^s disease
     Dosage: WEEK 8?FORM STRENGTH: 600MG
     Route: 042
     Dates: start: 202305, end: 202305

REACTIONS (8)
  - Gastrointestinal stoma complication [Unknown]
  - Therapeutic product effect incomplete [Not Recovered/Not Resolved]
  - Flatulence [Unknown]
  - Nasal congestion [Not Recovered/Not Resolved]
  - Frequent bowel movements [Unknown]
  - Inflammation [Not Recovered/Not Resolved]
  - Rhinorrhoea [Not Recovered/Not Resolved]
  - Crohn^s disease [Not Recovered/Not Resolved]

NARRATIVE: CASE EVENT DATE: 20230101
